FAERS Safety Report 7306068-7 (Version None)
Quarter: 2011Q1

REPORT INFORMATION
  Report Type: 
  Country: None (occurrence: None)
  Receive Date: 20110210
  Receipt Date: 20110127
  Transmission Date: 20110831
  Serious: Yes (Hospitalization, Other)
  Sender: FDA-Public Use
  Company Number: 026468

PATIENT
  Sex: Male
  Weight: 3.1 kg

DRUGS (4)
  1. TIMONIL (TIMONIL RETARD) (NOT SPECIFIED) [Suspect]
     Indication: EPILEPSY
     Dosage: 150 MG  6X/DAY TRANSPLACENTAL
     Route: 064
  2. KEPPRA [Suspect]
     Indication: EPILEPSY
     Dosage: 500 MG 6X/DAY TRANSPLACENTAL
     Route: 064
  3. FOLIC ACID [Concomitant]
  4. INSULIN [Concomitant]

REACTIONS (3)
  - AGITATION NEONATAL [None]
  - DRUG WITHDRAWAL SYNDROME NEONATAL [None]
  - MATERNAL DRUGS AFFECTING FOETUS [None]
